FAERS Safety Report 14263036 (Version 2)
Quarter: 2018Q1

REPORT INFORMATION
  Report Type: Spontaneous
  Country: AU (occurrence: AU)
  Receive Date: 20171208
  Receipt Date: 20180119
  Transmission Date: 20180508
  Serious: Yes (Hospitalization, Disabling)
  Sender: FDA-Public Use
  Company Number: AU-AMGEN-AUSSP2017171297

PATIENT
  Age: 69 Year
  Sex: Female
  Weight: 50 kg

DRUGS (23)
  1. EZETROL [Concomitant]
     Active Substance: EZETIMIBE
     Indication: CARDIOMYOPATHY
     Dosage: 10 MG, QD
  2. ALDACTONE [Concomitant]
     Active Substance: SPIRONOLACTONE
     Dosage: 12.5 MG, BID
  3. BISOPROLOL FUMARATE. [Concomitant]
     Active Substance: BISOPROLOL FUMARATE
     Dosage: 2.5 MG, QD
  4. NORVASC [Concomitant]
     Active Substance: AMLODIPINE BESYLATE
     Dosage: 10 MG, HALF MANE HALF NOCTE
  5. VENTOLIN NEBULAS [Concomitant]
     Dosage: 5 MG/2.5 ML, AS NECESSARY
  6. CALTRATE [Concomitant]
     Active Substance: CALCIUM CARBONATE
     Dosage: 1500 MG (EQUIVALENT TO 600 MG CALCIUM), QD
  7. LASIX [Concomitant]
     Active Substance: FUROSEMIDE
     Dosage: 40 MG (HALF), QD
  8. LEVOTHYROXINE SODIUM. [Concomitant]
     Active Substance: LEVOTHYROXINE SODIUM
     Dosage: 100 MCG, QD
  9. NASONEX [Concomitant]
     Active Substance: MOMETASONE FUROATE
     Dosage: 50 MCG/ACTUATION, BID
     Route: 045
  10. ENDEP [Concomitant]
     Active Substance: AMITRIPTYLINE HYDROCHLORIDE
     Dosage: 100 MG, QD
  11. CARTIA XT [Concomitant]
     Active Substance: DILTIAZEM HYDROCHLORIDE
     Dosage: 100 MG, QD
  12. GASTROGEL [Concomitant]
     Active Substance: ALUMINUM HYDROXIDE\MAGNESIUM HYDROXIDE\MAGNESIUM TRISILICATE
     Dosage: 250MG-120MG-120 MG/5ML, TID
  13. NORVASC [Concomitant]
     Active Substance: AMLODIPINE BESYLATE
     Dosage: 5 MG (HALF MID DAY) QD
  14. SYMBICORT [Concomitant]
     Active Substance: BUDESONIDE\FORMOTEROL FUMARATE DIHYDRATE
     Dosage: 200 MCG-6 MCG (2 PUFFS), BID
  15. PROLIA [Suspect]
     Active Substance: DENOSUMAB
     Indication: PRODUCT USED FOR UNKNOWN INDICATION
     Dosage: 60 MG/ML, AS NECESSARY
     Route: 065
  16. MONODUR [Concomitant]
     Active Substance: ISOSORBIDE MONONITRATE
     Dosage: 60 MG (HALF IN MORNING), QD
  17. OSTEOMOL 665 PARACETAMOL [Concomitant]
     Dosage: 665 MG, 2-3 TIMES A DAY
  18. OROXINE [Concomitant]
     Active Substance: LEVOTHYROXINE SODIUM
     Dosage: UNK
  19. PRASUGREL. [Concomitant]
     Active Substance: PRASUGREL
     Dosage: 5 MG (IN MORNING), QD
  20. REPATHA [Suspect]
     Active Substance: EVOLOCUMAB
     Indication: PRODUCT USED FOR UNKNOWN INDICATION
     Dosage: 140 MG/ML, AS NECESSARY
     Route: 065
     Dates: start: 20170609
  21. TAZAC [Concomitant]
     Dosage: 150 MG, BID
  22. REPATHA [Suspect]
     Active Substance: EVOLOCUMAB
     Dosage: HALF DOSE UNK
     Route: 065
     Dates: start: 20171023
  23. NITROLINGUAL [Concomitant]
     Active Substance: NITROGLYCERIN
     Dosage: 400 MCG, AS NECESSARY

REACTIONS (14)
  - Musculoskeletal stiffness [Unknown]
  - Fatigue [Recovered/Resolved]
  - Malaise [Unknown]
  - Off label use [Unknown]
  - Abdominal pain [Recovered/Resolved]
  - Toothache [Recovered/Resolved]
  - Myalgia [Recovered/Resolved]
  - Pain [Unknown]
  - Mobility decreased [Unknown]
  - Rhinorrhoea [Unknown]
  - Large intestine polyp [Unknown]
  - Cough [Unknown]
  - Headache [Recovered/Resolved]
  - Back pain [Recovered/Resolved]

NARRATIVE: CASE EVENT DATE: 2017
